FAERS Safety Report 19570832 (Version 11)
Quarter: 2021Q4

REPORT INFORMATION
  Report Type: Report from Study
  Country: BR (occurrence: BR)
  Receive Date: 20210716
  Receipt Date: 20211112
  Transmission Date: 20220303
  Serious: Yes (Other)
  Sender: FDA-Public Use
  Company Number: BR-KOREA IPSEN PHARMA-2019-00786

PATIENT
  Age: 56 Year
  Sex: Female

DRUGS (30)
  1. LANREOTIDE ACETATE [Suspect]
     Active Substance: LANREOTIDE ACETATE
     Indication: Acromegaly
     Dosage: 120 MG EACH 30 DAYS (SITE-BUTTOCKS)
     Route: 030
     Dates: start: 201710
  2. LANREOTIDE ACETATE [Suspect]
     Active Substance: LANREOTIDE ACETATE
     Dosage: 120 MG EACH 30 DAYS (SITE-BUTTOCKS)
     Route: 058
  3. CABERGOLINE [Suspect]
     Active Substance: CABERGOLINE
     Indication: Acromegaly
     Dosage: 7 TABLETS EACH WEEK
     Route: 048
     Dates: start: 2017
  4. CABERGOLINE [Suspect]
     Active Substance: CABERGOLINE
     Dosage: 5 TABLETS EACH WEEK
     Route: 048
  5. CABERGOLINE [Suspect]
     Active Substance: CABERGOLINE
     Dosage: 1 TABLET PER NIGHT TWO TIMES A WEEK
     Route: 048
  6. DESMOPRESSIN ACETATE [Suspect]
     Active Substance: DESMOPRESSIN ACETATE
     Indication: Diabetes insipidus
     Dosage: 0.1 MG/ML  1 JET IN EACH NOSTRIL FOR DIABETES INSIPIDUS;
     Route: 045
  7. ASTRAZENECA COVID-19 VACCINE [Suspect]
     Active Substance: AZD-1222
     Indication: COVID-19 immunisation
     Dosage: NOT REPORTED
     Route: 065
     Dates: start: 20210513, end: 20210513
  8. ASTRAZENECA COVID-19 VACCINE [Suspect]
     Active Substance: AZD-1222
     Route: 065
     Dates: start: 20210805, end: 20210805
  9. AMLODIPINE [Concomitant]
     Active Substance: AMLODIPINE BESYLATE
     Indication: Hypertension
     Dosage: ONE TABLET IN 12 HOURS
     Route: 048
  10. ATENOLOL [Concomitant]
     Active Substance: ATENOLOL
     Indication: Cardiac failure
     Dosage: 1 TABLET, BY THE MORNING
     Route: 048
  11. GLIFAGE [Concomitant]
     Active Substance: METFORMIN HYDROCHLORIDE
     Indication: Type 2 diabetes mellitus
     Dosage: 1 TABLET PER MORNING AND 1 TABLET AFTER DINNER
     Route: 048
     Dates: start: 2017
  12. GLIFAGE [Concomitant]
     Active Substance: METFORMIN HYDROCHLORIDE
     Dosage: 1 TABLET IN THE MORNING AND 1 TABLET AT NIGHT
     Route: 048
  13. ATORVASTATIN [Concomitant]
     Active Substance: ATORVASTATIN
     Indication: Hypercholesterolaemia
     Dosage: 1 TABLET A DAY
     Route: 048
  14. ATORVASTATIN [Concomitant]
     Active Substance: ATORVASTATIN
     Route: 048
  15. CHOLECALCIFEROL [Concomitant]
     Active Substance: CHOLECALCIFEROL
     Indication: Vitamin supplementation
     Dosage: 3 CAPLETS EACH 7 DAYS, 1 TABLET DAILY, (50000 IU EACH 7 DAYS)
     Route: 048
     Dates: start: 20210104
  16. FLUTICASONE FUROATE [Concomitant]
     Active Substance: FLUTICASONE FUROATE
     Indication: Rhinitis
     Dosage: 1 PULVERISATION DAILY
     Route: 045
  17. AZELASTINE [Concomitant]
     Active Substance: AZELASTINE
     Indication: Rhinitis
     Dosage: 1 PULVERISATION ONCE DAILY
     Route: 045
  18. SALSEP SPRAY [Concomitant]
     Dosage: 0,9%, 1 JET IN EACH NOSTRIL FOUR TIMES PER DAY,
     Route: 045
     Dates: start: 2017
  19. AMLODIPINE BESYLATE\OLMESARTAN MEDOXOMIL [Concomitant]
     Active Substance: AMLODIPINE BESYLATE\OLMESARTAN MEDOXOMIL
     Indication: Hypertension
     Dosage: STRENGTH: 40 MG/ 10 MG (1 TABLET PER DAY)
     Dates: start: 20210103
  20. METOPROLOL SUCCINATE [Concomitant]
     Active Substance: METOPROLOL SUCCINATE
     Indication: Hypertension
     Dates: start: 20210104
  21. METOPROLOL SUCCINATE [Concomitant]
     Active Substance: METOPROLOL SUCCINATE
     Indication: Arrhythmia
  22. METOPROLOL SUCCINATE [Concomitant]
     Active Substance: METOPROLOL SUCCINATE
     Indication: Illness
  23. DYMISTA [Concomitant]
     Active Substance: AZELASTINE HYDROCHLORIDE\FLUTICASONE PROPIONATE
     Indication: Rhinitis
     Dosage: ONE SPRAY WHEN PATIENT LIES DOWN (CONTINUOUS USE), 1 JET IN EACH NOSTRIL AT NIGHT
     Route: 045
     Dates: start: 20210413
  24. LOSARTAN [Concomitant]
     Active Substance: LOSARTAN
     Indication: Hypertension
     Dosage: TWO TABLETS /DAY (IN MORNING)
     Route: 048
  25. VITAMIN D [Concomitant]
     Active Substance: VITAMIN D NOS
  26. L-CAPS [Concomitant]
     Indication: Vitamin supplementation
     Dosage: 2 TABLETS PER DAY
     Dates: start: 20210104
  27. ELECTROLYTES NOS\POLYETHYLENE GLYCOL 3350 [Concomitant]
     Active Substance: ELECTROLYTES NOS\POLYETHYLENE GLYCOL 3350
     Indication: Constipation
     Dosage: 14 G ONE TIME PER DAY WHEN NECESSARY
     Dates: start: 2019
  28. HYLOGEL [Concomitant]
     Indication: Dry eye
     Dosage: 1 DROP IN EACH EYE EACH 12 HOUR
     Route: 047
     Dates: start: 2015
  29. ROSUVASTATIN [Concomitant]
     Active Substance: ROSUVASTATIN
     Indication: Blood cholesterol
     Dosage: 1 TABLET PER NIGHT TO CHOLESTEROL CONTROL,
     Dates: start: 20210104
  30. CARBOXYMETHYLCELLULOSE SODIUM\GLYCERIN [Concomitant]
     Active Substance: CARBOXYMETHYLCELLULOSE SODIUM\GLYCERIN
     Indication: Dry eye
     Dosage: 1 DROP/3 TIMES A DAY
     Route: 047

REACTIONS (47)
  - Nausea [Not Recovered/Not Resolved]
  - Peripheral swelling [Recovering/Resolving]
  - Hypertension [Recovered/Resolved]
  - Application site warmth [Recovered/Resolved]
  - Injection site haemorrhage [Recovered/Resolved]
  - Injection site erythema [Recovering/Resolving]
  - Thrombosis [Recovered/Resolved]
  - Arrhythmia [Recovering/Resolving]
  - Injection site nodule [Recovered/Resolved]
  - Injection site mass [Recovered/Resolved]
  - Injection site pain [Recovered/Resolved]
  - Alopecia [Not Recovered/Not Resolved]
  - Hypersensitivity [Recovered/Resolved]
  - Abdominal pain [Recovered/Resolved]
  - Diarrhoea [Recovered/Resolved]
  - Blood growth hormone increased [Recovered/Resolved]
  - Injection site swelling [Recovered/Resolved]
  - Injection site erythema [Recovered/Resolved]
  - Nervousness [Unknown]
  - Skin lesion [Recovering/Resolving]
  - Back pain [Recovered/Resolved]
  - Influenza [Recovered/Resolved]
  - Hypoglycaemia [Recovered/Resolved]
  - Fatigue [Recovered/Resolved]
  - Headache [Recovered/Resolved]
  - Injection site pain [Recovered/Resolved]
  - Hypoaesthesia [Recovered/Resolved]
  - Illness [Not Recovered/Not Resolved]
  - Rhinitis allergic [Not Recovered/Not Resolved]
  - Exposure to SARS-CoV-2 [Recovered/Resolved]
  - Injection site hypersensitivity [Recovered/Resolved]
  - Fatigue [Recovering/Resolving]
  - Weight decreased [Recovered/Resolved]
  - Musculoskeletal stiffness [Recovered/Resolved]
  - Muscle disorder [Recovered/Resolved]
  - Arthralgia [Recovered/Resolved]
  - Fall [Recovered/Resolved]
  - Stress [Recovered/Resolved]
  - Malaise [Recovered/Resolved]
  - Contusion [Recovered/Resolved]
  - Back pain [Recovered/Resolved]
  - Injection site pain [Unknown]
  - Pyrexia [Recovered/Resolved]
  - Inappropriate schedule of product administration [Unknown]
  - Product dose omission issue [Unknown]
  - Incorrect route of product administration [Unknown]
  - Product physical consistency issue [Unknown]

NARRATIVE: CASE EVENT DATE: 20170101
